FAERS Safety Report 6156057-3 (Version None)
Quarter: 2009Q2

REPORT INFORMATION
  Report Type: 
  Country: None (occurrence: None)
  Receive Date: 20090415
  Receipt Date: 20090406
  Transmission Date: 20091009
  Serious: Yes (Hospitalization)
  Sender: FDA-Public Use
  Company Number: ES-ELI_LILLY_AND_COMPANY-ES200904001645

PATIENT
  Age: 65 Year
  Sex: Female

DRUGS (2)
  1. FORTEO [Suspect]
     Indication: OSTEOPOROSIS
     Dosage: 20 UG, UNKNOWN
     Route: 058
     Dates: start: 20080201, end: 20090201
  2. FORTEO [Suspect]
     Dosage: 20 UG, UNKNOWN
     Route: 065
     Dates: start: 20090301

REACTIONS (2)
  - APPENDICITIS PERFORATED [None]
  - FEELING ABNORMAL [None]
